FAERS Safety Report 19841700 (Version 1)
Quarter: 2021Q3

REPORT INFORMATION
  Report Type: Spontaneous
  Country: PT (occurrence: PT)
  Receive Date: 20210916
  Receipt Date: 20210916
  Transmission Date: 20211014
  Serious: Yes (Death, Hospitalization)
  Sender: FDA-Public Use
  Company Number: PT-MYLANLABS-2021M1061914

PATIENT
  Age: 54 Year
  Sex: Male

DRUGS (2)
  1. CISPLATIN. [Suspect]
     Active Substance: CISPLATIN
     Indication: ANAPLASTIC THYROID CANCER
     Dosage: 100 MILLIGRAM/SQ. METER
     Route: 065
  2. DOXORUBICIN                        /00330902/ [Suspect]
     Active Substance: DOXORUBICIN
     Indication: ANAPLASTIC THYROID CANCER
     Dosage: 50 MILLIGRAM/SQ. METER
     Route: 065

REACTIONS (2)
  - Sepsis [Fatal]
  - Febrile neutropenia [Fatal]
